FAERS Safety Report 6097863-3 (Version None)
Quarter: 2009Q1

REPORT INFORMATION
  Report Type: 
  Country: None (occurrence: None)
  Receive Date: 20090225
  Receipt Date: 20090209
  Transmission Date: 20090719
  Serious: Yes (Other)
  Sender: FDA-Public Use
  Company Number: 8043345

PATIENT
  Age: 43 Year
  Sex: Male

DRUGS (1)
  1. HYDROCORTANCYL [Suspect]
     Indication: DYSAESTHESIA
     Dosage: 125 MG ONCE PDU

REACTIONS (5)
  - DISEASE RECURRENCE [None]
  - DYSAESTHESIA [None]
  - INTERVERTEBRAL DISC PROTRUSION [None]
  - PARAPLEGIA [None]
  - SPINAL CORD ISCHAEMIA [None]
